FAERS Safety Report 17782805 (Version 1)
Quarter: 2020Q2

REPORT INFORMATION
  Report Type: Spontaneous
  Country: US (occurrence: US)
  Receive Date: 20200513
  Receipt Date: 20200513
  Transmission Date: 20200714
  Serious: Yes (Other)
  Sender: FDA-Public Use
  Company Number: US-PFIZER INC-2020190773

PATIENT
  Age: 65 Year
  Sex: Female
  Weight: 115.21 kg

DRUGS (1)
  1. XELJANZ XR [Suspect]
     Active Substance: TOFACITINIB CITRATE
     Indication: RHEUMATOID ARTHRITIS
     Dosage: 11 MG, DAILY
     Route: 048

REACTIONS (3)
  - Peroneal nerve palsy [Not Recovered/Not Resolved]
  - Accident at work [Not Recovered/Not Resolved]
  - Peripheral nerve injury [Not Recovered/Not Resolved]

NARRATIVE: CASE EVENT DATE: 201912
